FAERS Safety Report 6970881-6 (Version None)
Quarter: 2010Q3

REPORT INFORMATION
  Report Type: 
  Country: None (occurrence: None)
  Receive Date: 20100908
  Receipt Date: 20100831
  Transmission Date: 20110219
  Serious: Yes (Other)
  Sender: FDA-Public Use
  Company Number: B0673620A

PATIENT
  Age: 65 Year
  Sex: Female

DRUGS (2)
  1. AVAMYS [Suspect]
     Indication: SINUSITIS
     Dosage: 2SPR TWICE PER DAY
     Dates: start: 20100701, end: 20100708
  2. ANTIBIOTIC [Concomitant]

REACTIONS (1)
  - ANOSMIA [None]
